FAERS Safety Report 6204321-1 (Version None)
Quarter: 2009Q2

REPORT INFORMATION
  Report Type: 
  Country: None (occurrence: None)
  Receive Date: 20090522
  Receipt Date: 20090508
  Transmission Date: 20091009
  Serious: Yes (Death)
  Sender: FDA-Public Use
  Company Number: OSCN-PR-0905S-0231

PATIENT
  Sex: Female

DRUGS (5)
  1. OMNISCAN [Suspect]
     Indication: DRUG USE FOR UNKNOWN INDICATION
     Dosage: SINGLE DOSE
     Dates: start: 20040429, end: 20040429
  2. OMNISCAN [Suspect]
     Indication: DRUG USE FOR UNKNOWN INDICATION
     Dosage: SINGLE DOSE
     Dates: start: 20060112, end: 20060112
  3. OMNISCAN [Suspect]
     Indication: DRUG USE FOR UNKNOWN INDICATION
     Dosage: SINGLE DOSE
     Dates: start: 20060425, end: 20060425
  4. OMNISCAN [Suspect]
     Indication: DRUG USE FOR UNKNOWN INDICATION
     Dosage: SINGLE DOSE
     Dates: start: 20060509, end: 20060509
  5. OMNISCAN [Suspect]
     Indication: DRUG USE FOR UNKNOWN INDICATION
     Dosage: SINGLE DOSE
     Dates: start: 20060811, end: 20060811

REACTIONS (1)
  - NEPHROGENIC SYSTEMIC FIBROSIS [None]
